FAERS Safety Report 4554756-8 (Version None)
Quarter: 2005Q1

REPORT INFORMATION
  Report Type: 
  Country: None (occurrence: None)
  Receive Date: 20050118
  Receipt Date: 20040708
  Transmission Date: 20050727
  Serious: Yes (Hospitalization)
  Sender: FDA-Public Use
  Company Number: JP-GLAXOSMITHKLINE-B0338744A

PATIENT
  Age: 61 Year
  Sex: Male
  Weight: 69 kg

DRUGS (7)
  1. PAXIL [Suspect]
     Indication: PANIC DISORDER
     Route: 048
     Dates: start: 20010907, end: 20040625
  2. ALPRAZOLAM [Concomitant]
     Indication: PANIC DISORDER
     Dosage: 1.2MG PER DAY
     Route: 048
     Dates: start: 19890101
  3. ZANTAC [Concomitant]
     Dosage: 150MG TWICE PER DAY
     Route: 048
  4. MEILAX [Concomitant]
     Indication: PANIC DISORDER
     Dosage: 1MG TWICE PER DAY
     Route: 048
     Dates: start: 20020301
  5. ALPRAZOLAM [Concomitant]
     Dosage: 1.6MG PER DAY
     Route: 048
     Dates: start: 20020628, end: 20040323
  6. ALPRAZOLAM [Concomitant]
     Dosage: 1.2MG PER DAY
     Route: 048
     Dates: start: 20040324, end: 20040625
  7. SOLANAX [Concomitant]
     Route: 048

REACTIONS (10)
  - AGGRESSION [None]
  - DEPRESSION [None]
  - DISINHIBITION [None]
  - EXCITABILITY [None]
  - IRRITABILITY [None]
  - LOGORRHOEA [None]
  - MANIA [None]
  - PSYCHOMOTOR HYPERACTIVITY [None]
  - SOLILOQUY [None]
  - SPEECH DISORDER [None]
